FAERS Safety Report 4678548-4 (Version None)
Quarter: 2005Q2

REPORT INFORMATION
  Report Type: 
  Country: None (occurrence: None)
  Receive Date: 20050601
  Receipt Date: 20050506
  Transmission Date: 20051028
  Serious: Yes (Life-Threatening)
  Sender: FDA-Public Use
  Company Number: JP-MERCK-0505USA03375

PATIENT
  Age: 73 Year
  Sex: Male

DRUGS (2)
  1. PEPCID [Suspect]
     Route: 048
     Dates: start: 20050304, end: 20050310
  2. PEPCID [Suspect]
     Route: 048
     Dates: start: 20050201, end: 20050219

REACTIONS (3)
  - GINGIVAL BLEEDING [None]
  - PLATELET COUNT DECREASED [None]
  - PURPURA [None]
